FAERS Safety Report 5120217-0 (Version None)
Quarter: 2006Q4

REPORT INFORMATION
  Report Type: 
  Country: None (occurrence: None)
  Receive Date: 20061002
  Receipt Date: 20061002
  Transmission Date: 20070319
  Serious: Yes (Life-Threatening)
  Sender: FDA-Public Use
  Company Number: None

PATIENT
  Age: 54 Year
  Sex: Male
  Weight: 81.6475 kg

DRUGS (2)
  1. CLINDAMYCIN HCL [Suspect]
     Indication: TOOTH ABSCESS
     Dosage: 300 MG 6 HOURS PO
     Route: 048
     Dates: start: 20050209, end: 20050212
  2. ETODOLAC [Suspect]
     Indication: TOOTH ABSCESS
     Dosage: 400 MG 5-8 HOURS PO
     Route: 048
     Dates: start: 20050209, end: 20060212

REACTIONS (8)
  - ABDOMINAL DISTENSION [None]
  - ABDOMINAL PAIN UPPER [None]
  - ABNORMAL FAECES [None]
  - ALCOHOL USE [None]
  - DIARRHOEA [None]
  - GASTROINTESTINAL DISORDER [None]
  - HAEMATOCHEZIA [None]
  - NEOPLASM [None]
